FAERS Safety Report 6720104-8 (Version None)
Quarter: 2010Q2

REPORT INFORMATION
  Report Type: 
  Country: None (occurrence: None)
  Receive Date: 20100511
  Receipt Date: 20100504
  Transmission Date: 20101027
  Serious: Yes (Hospitalization)
  Sender: FDA-Public Use
  Company Number: SE-GILEAD-2010-0028960

PATIENT
  Sex: Female

DRUGS (2)
  1. VIREAD [Suspect]
     Indication: HEPATITIS B
     Route: 048
     Dates: start: 20100126
  2. PANDEMRIX [Concomitant]

REACTIONS (1)
  - INTRA-UTERINE DEATH [None]
